APPROVED DRUG PRODUCT: ROPIVACAINE HYDROCHLORIDE
Active Ingredient: ROPIVACAINE HYDROCHLORIDE
Strength: 400MG/200ML (2MG/ML)
Dosage Form/Route: SOLUTION;INJECTION
Application: A206091 | Product #002 | TE Code: AP
Applicant: MYLAN LABORATORIES LTD
Approved: Oct 26, 2023 | RLD: No | RS: No | Type: RX